FAERS Safety Report 9708555 (Version 1)
Quarter: 2013Q4

REPORT INFORMATION
  Report Type: Spontaneous
  Country: US (occurrence: None)
  Receive Date: 20131121
  Receipt Date: 20131121
  Transmission Date: 20140711
  Serious: Yes (Hospitalization)
  Sender: FDA-Public Use
  Company Number: 13-04759

PATIENT
  Age: 60 Year
  Sex: Male

DRUGS (2)
  1. ALBUTEROL SULFATE [Suspect]
     Indication: CHRONIC OBSTRUCTIVE PULMONARY DISEASE
     Dosage: 1 VIAL TID 054
     Dates: start: 201310
  2. UNKNOWN BLOOD PRESSURE MEDICATION [Concomitant]

REACTIONS (2)
  - Chronic obstructive pulmonary disease [None]
  - Product quality issue [None]
